FAERS Safety Report 8685012 (Version 4)
Quarter: 2012Q4

REPORT INFORMATION
  Report Type: 
  Country: US (occurrence: US)
  Receive Date: 20120726
  Receipt Date: 20121023
  Transmission Date: 20130627
  Serious: No
  Sender: FDA-Public Use
  Company Number: US-ASTRAZENECA-2012SE48881

PATIENT
  Age: 56 Year
  Sex: Female
  Weight: 59 kg

DRUGS (6)
  1. SYMBICORT [Suspect]
     Indication: CHRONIC OBSTRUCTIVE PULMONARY DISEASE
     Dosage: 320 MCG, BID (160/4.5 MCG, TWO PUFF BID)
     Route: 055
     Dates: start: 201202, end: 20120712
  2. SYMBICORT [Suspect]
     Indication: CHRONIC OBSTRUCTIVE PULMONARY DISEASE
     Dosage: 320 MCG, BID (160/4.5 MCG, TWO PUFF BID)
     Route: 055
  3. COMBIVENT [Suspect]
     Route: 055
  4. ALBUTEROL [Concomitant]
     Indication: CHRONIC OBSTRUCTIVE PULMONARY DISEASE
     Route: 055
  5. LEVOTHYROXINE [Concomitant]
     Route: 048
  6. VITAMINS [Concomitant]
     Dosage: DAILY
     Route: 048

REACTIONS (9)
  - Dyspnoea [Not Recovered/Not Resolved]
  - Wheezing [Not Recovered/Not Resolved]
  - Feeling cold [Not Recovered/Not Resolved]
  - Visual impairment [Recovered/Resolved]
  - Cough [Unknown]
  - Retching [Unknown]
  - Dysphonia [Recovered/Resolved]
  - Drug dose omission [Unknown]
  - Drug ineffective [Recovered/Resolved]
